FAERS Safety Report 5170701-9 (Version None)
Quarter: 2006Q4

REPORT INFORMATION
  Report Type: 
  Country: None (occurrence: None)
  Receive Date: 20060919
  Receipt Date: 20060802
  Transmission Date: 20070319
  Serious: No
  Sender: FDA-Public Use
  Company Number: 2006US001354

PATIENT
  Age: 80 Year
  Sex: Female

DRUGS (11)
  1. VESICARE [Suspect]
     Indication: HYPERTONIC BLADDER
     Dosage: 5 MG, ORAL
     Route: 048
  2. ACIPHEX [Concomitant]
  3. LUTEIN (XANTOFYL) [Concomitant]
  4. CALCIUM (ASCORBIC ACID) [Concomitant]
  5. GRAPE SEED EXTRACT (VITIS VINIFERA EXTRACT) [Concomitant]
  6. ASPIRIN [Concomitant]
  7. OCUVITE (TOCOPHEROL) [Concomitant]
  8. NORVASC [Concomitant]
  9. LASIX [Concomitant]
  10. ALLEGRA [Concomitant]
  11. VITAMIN E [Concomitant]

REACTIONS (1)
  - DRUG INEFFECTIVE [None]
